FAERS Safety Report 11144633 (Version 1)
Quarter: 2015Q2

REPORT INFORMATION
  Report Type: Spontaneous
  Country: US (occurrence: None)
  Receive Date: 20150526
  Receipt Date: 20150526
  Transmission Date: 20150821
  Serious: No
  Sender: FDA-Public Use
  Company Number: None

PATIENT
  Age: 45 Day
  Sex: Male
  Weight: 65.77 kg

DRUGS (1)
  1. RESTASIS [Suspect]
     Active Substance: CYCLOSPORINE
     Indication: DRY EYE
     Dosage: 1 MONTH SUPPLY; INTO THE EYE
     Route: 047
     Dates: start: 20150516, end: 20150522

REACTIONS (3)
  - Burning sensation [None]
  - Product contamination [None]
  - Incorrect product storage [None]

NARRATIVE: CASE EVENT DATE: 20150522
